FAERS Safety Report 5245562-X (Version None)
Quarter: 2007Q1

REPORT INFORMATION
  Report Type: 
  Country: None (occurrence: None)
  Receive Date: 20070223
  Receipt Date: 20070214
  Transmission Date: 20070707
  Serious: Yes (Life-Threatening)
  Sender: FDA-Public Use
  Company Number: FR-ABBOTT-07P-056-0358312-00

PATIENT
  Sex: Male

DRUGS (7)
  1. HUMIRA [Suspect]
     Indication: RHEUMATOID ARTHRITIS
     Route: 058
     Dates: start: 20050725
  2. RISEDRONATE MONOSODIQUE [Suspect]
     Indication: OSTEOPOROSIS
     Route: 048
     Dates: start: 20030101
  3. PREDNISONE TAB [Suspect]
     Indication: RHEUMATOID ARTHRITIS
     Route: 048
     Dates: start: 20030101
  4. PREDNISONE TAB [Concomitant]
     Route: 048
     Dates: start: 20010101
  5. RISEDRONATE MONOSODIQUE [Concomitant]
     Route: 048
     Dates: start: 20010101, end: 20061227
  6. FOLIC ACID [Concomitant]
     Indication: RHEUMATOID ARTHRITIS
     Dates: start: 20000101
  7. METHOTREXATE [Concomitant]
     Indication: RHEUMATOID ARTHRITIS
     Dates: start: 20000101

REACTIONS (5)
  - AMYOTROPHIC LATERAL SCLEROSIS [None]
  - CHOKING [None]
  - ELECTROMYOGRAM ABNORMAL [None]
  - GENERAL PHYSICAL HEALTH DETERIORATION [None]
  - WEIGHT DECREASED [None]
